FAERS Safety Report 4474058-8 (Version None)
Quarter: 2004Q4

REPORT INFORMATION
  Report Type: 
  Country: None (occurrence: None)
  Receive Date: 20041008
  Receipt Date: 20040922
  Transmission Date: 20050328
  Serious: Yes (Death, Hospitalization)
  Sender: FDA-Public Use
  Company Number: 2004-BP-08586RO

PATIENT
  Age: 30 Year
  Sex: Female

DRUGS (2)
  1. CYCLOPHOSPHAMIDE [Suspect]
     Indication: SYSTEMIC SCLEROSIS
     Dosage: 600 MG/M2
     Dates: start: 20020622
  2. ADRIAMYCIN PFS [Suspect]
     Indication: SYSTEMIC SCLEROSIS
     Dosage: 60 MG/M2
     Dates: start: 20040622

REACTIONS (14)
  - BLOOD PRESSURE DECREASED [None]
  - BLOOD PRESSURE SYSTOLIC INSPIRATORY DECREASED [None]
  - BREATH SOUNDS ABSENT [None]
  - CARDIAC TAMPONADE [None]
  - CARDIO-RESPIRATORY ARREST [None]
  - CONDITION AGGRAVATED [None]
  - DIASTOLIC DYSFUNCTION [None]
  - HEART RATE INCREASED [None]
  - OEDEMA PERIPHERAL [None]
  - PALPITATIONS [None]
  - PERICARDITIS [None]
  - RENAL FAILURE [None]
  - SCLERODERMA [None]
  - TRICUSPID VALVE INCOMPETENCE [None]
